FAERS Safety Report 24276587 (Version 1)
Quarter: 2024Q3

REPORT INFORMATION
  Report Type: Spontaneous
  Country: FR (occurrence: FR)
  Receive Date: 20240903
  Receipt Date: 20240903
  Transmission Date: 20241017
  Serious: Yes (Other)
  Sender: RANBAXY
  Company Number: FR-SUN PHARMACEUTICAL INDUSTRIES LTD-2024RR-465505

PATIENT
  Age: 68 Year
  Sex: Female

DRUGS (8)
  1. OLANZAPINE [Suspect]
     Active Substance: OLANZAPINE
     Indication: Delusion
     Dosage: MAJORATION DE LA DOSE LE 23/04
     Route: 048
     Dates: start: 20240409
  2. LORAZEPAM [Suspect]
     Active Substance: LORAZEPAM
     Indication: Depression
     Dosage: 3 X 1 MG + 2.5 MG / JOUR MAJOR? LE 03/05
     Route: 048
     Dates: start: 20240416
  3. CLOMIPRAMINE [Suspect]
     Active Substance: CLOMIPRAMINE
     Indication: Depression
     Dosage: 125 MILLIGRAM, DAILY
     Route: 048
     Dates: start: 20240507
  4. CLOMIPRAMINE [Suspect]
     Active Substance: CLOMIPRAMINE
     Route: 048
     Dates: start: 20240503, end: 20240504
  5. CLOMIPRAMINE [Suspect]
     Active Substance: CLOMIPRAMINE
     Route: 048
     Dates: start: 20240501, end: 20240502
  6. CLOMIPRAMINE [Suspect]
     Active Substance: CLOMIPRAMINE
     Route: 048
     Dates: start: 20240505, end: 20240506
  7. CLOMIPRAMINE [Suspect]
     Active Substance: CLOMIPRAMINE
     Route: 048
     Dates: start: 20240429, end: 20240430
  8. MIDODRINE [Suspect]
     Active Substance: MIDODRINE
     Indication: Depression
     Dosage: 2.5 MG X 3 /JOUR
     Route: 048
     Dates: start: 20240312

REACTIONS (1)
  - Liver injury [Recovering/Resolving]

NARRATIVE: CASE EVENT DATE: 20240510
